FAERS Safety Report 4863882-5 (Version None)
Quarter: 2005Q4

REPORT INFORMATION
  Report Type: 
  Country: None (occurrence: None)
  Receive Date: 20051219
  Receipt Date: 20051201
  Transmission Date: 20060501
  Serious: Yes (Hospitalization)
  Sender: FDA-Public Use
  Company Number: DSA_27484_2005

PATIENT
  Age: 29 Year
  Sex: Female

DRUGS (2)
  1. LORAZEPAM [Suspect]
     Dosage: 20 MG ONCE PO
     Route: 048
     Dates: start: 20051130, end: 20051130
  2. LUMINAL [Suspect]
     Dosage: 800 MG ONCE PO
     Route: 048
     Dates: start: 20051130, end: 20051130

REACTIONS (6)
  - AGITATION [None]
  - DIARRHOEA [None]
  - INTENTIONAL OVERDOSE [None]
  - PARAESTHESIA [None]
  - SUICIDE ATTEMPT [None]
  - TACHYCARDIA [None]
